FAERS Safety Report 6466094-7 (Version None)
Quarter: 2009Q4

REPORT INFORMATION
  Report Type: 
  Country: None (occurrence: None)
  Receive Date: 20091127
  Receipt Date: 20091123
  Transmission Date: 20100525
  Serious: Yes (Other)
  Sender: FDA-Public Use
  Company Number: DSA_42066_2009

PATIENT
  Sex: Female

DRUGS (9)
  1. XENAZINE [Suspect]
     Indication: DYSKINESIA
     Dosage: 25 MG TID ORAL
     Route: 048
     Dates: start: 20090921
  2. GLUCOPHAGE [Concomitant]
  3. JANUVIA [Concomitant]
  4. PREVACID [Concomitant]
  5. ZOLOFT [Concomitant]
  6. INSULIN [Concomitant]
  7. REQUIP [Concomitant]
  8. DARVOCET /00758791/ [Concomitant]
  9. TYELNOL /00020001/ [Concomitant]

REACTIONS (5)
  - CEREBROVASCULAR ACCIDENT [None]
  - DYSTONIA [None]
  - HAND DEFORMITY [None]
  - MOVEMENT DISORDER [None]
  - SENSATION OF HEAVINESS [None]
